FAERS Safety Report 18701136 (Version 1)
Quarter: 2021Q1

REPORT INFORMATION
  Report Type: Spontaneous
  Country: GB (occurrence: GB)
  Receive Date: 20210105
  Receipt Date: 20210105
  Transmission Date: 20210419
  Serious: Yes (Other)
  Sender: FDA-Public Use
  Company Number: GB-MYLANLABS-2020M1106608

PATIENT
  Age: 64 Year
  Sex: Female
  Weight: 97 kg

DRUGS (11)
  1. PREGABALIN. [Concomitant]
     Active Substance: PREGABALIN
     Dosage: 2 DOSAGE FORM, QD (TO REDUCE AND STOP)
     Dates: start: 20200302, end: 20201006
  2. AMOXICILLIN. [Concomitant]
     Active Substance: AMOXICILLIN
     Dosage: 3 DOSAGE FORM, QD (FOR 7 DAYS)
     Dates: start: 20201117, end: 20201124
  3. CLOPIDOGREL [Concomitant]
     Active Substance: CLOPIDOGREL BISULFATE
     Dosage: 1 DOSAGE FORM, QD
     Dates: start: 20200302
  4. BUDESONIDE. [Concomitant]
     Active Substance: BUDESONIDE
     Dosage: 4 DOSAGE FORM (PUFFS)
     Dates: start: 20200302
  5. DOXYCYCLINE. [Concomitant]
     Active Substance: DOXYCYCLINE
     Dosage: UNK (1 TABLET TWICE DAILY ON DAY 1. THEREAFTER ONE T...)
     Dates: start: 20200302
  6. PREDNISOLONE. [Concomitant]
     Active Substance: PREDNISOLONE
     Dosage: 6 DOSAGE FORM, QD (IN THE MORNING FOR 7 DAYS.)
     Dates: start: 20200302, end: 20200309
  7. ATORVASTATIN [Concomitant]
     Active Substance: ATORVASTATIN
     Dosage: 1 DOSAGE FORM, QD (IN THE EVENING)
     Dates: start: 20200302
  8. FLUOXETINE [Suspect]
     Active Substance: FLUOXETINE HYDROCHLORIDE
     Indication: PRODUCT USED FOR UNKNOWN INDICATION
     Dosage: 20 MILLIGRAM, QD
     Dates: start: 20201006, end: 20201201
  9. CARBOCISTEINE [Concomitant]
     Active Substance: CARBOCYSTEINE
     Dosage: UNK (3 TABLETS TWICE DAILY, REDUCE TO 2 TWICE DAILY ...)
     Dates: start: 20200302
  10. SALBUTAMOL [Concomitant]
     Active Substance: ALBUTEROL
     Dosage: 2 DOSAGE FORM, PRN (PUFFS)
     Dates: start: 20200302
  11. BRALTUS [Concomitant]
     Active Substance: TIOTROPIUM BROMIDE
     Indication: CHRONIC OBSTRUCTIVE PULMONARY DISEASE
     Dosage: 1 DOSAGE FORM, QD ((BRALTUS IS T...)
     Route: 055
     Dates: start: 20200302

REACTIONS (1)
  - Burning sensation [Recovered/Resolved]

NARRATIVE: CASE EVENT DATE: 20201210
